FAERS Safety Report 10383105 (Version 1)
Quarter: 2014Q3

REPORT INFORMATION
  Report Type: Spontaneous
  Country: US (occurrence: US)
  Receive Date: 20140813
  Receipt Date: 20140813
  Transmission Date: 20150326
  Serious: Yes (Other)
  Sender: FDA-Public Use
  Company Number: US-SANOFI-AVENTIS-FABR-1003557

PATIENT
  Age: 37 Year
  Sex: Male
  Weight: 75.75 kg

DRUGS (7)
  1. PRAMIPEXOLE [Concomitant]
     Active Substance: PRAMIPEXOLE
     Indication: RESTLESS LEGS SYNDROME
  2. FABRAZYME [Suspect]
     Active Substance: AGALSIDASE BETA
     Indication: FABRY^S DISEASE
     Dosage: UNK
     Route: 042
     Dates: start: 20030822
  3. IRON [Concomitant]
     Active Substance: IRON
     Indication: RESTLESS LEGS SYNDROME
  4. TYLENOL [Concomitant]
     Active Substance: ACETAMINOPHEN
     Indication: PREMEDICATION
  5. DIPHENHYDRAMINE [Concomitant]
     Active Substance: DIPHENHYDRAMINE
     Indication: PREMEDICATION
  6. LOMOTIL [Concomitant]
     Active Substance: ATROPINE SULFATE\DIPHENOXYLATE HYDROCHLORIDE
     Indication: ABDOMINAL DISCOMFORT
  7. QUESTRAN [Concomitant]
     Active Substance: CHOLESTYRAMINE
     Indication: ABDOMINAL DISCOMFORT

REACTIONS (4)
  - Diarrhoea [Not Recovered/Not Resolved]
  - Pain in extremity [Not Recovered/Not Resolved]
  - Nausea [Unknown]
  - Antibody test positive [Not Recovered/Not Resolved]

NARRATIVE: CASE EVENT DATE: 2009
